FAERS Safety Report 13084587 (Version 1)
Quarter: 2017Q1

REPORT INFORMATION
  Report Type: Other
  Country: CH (occurrence: CH)
  Receive Date: 20170104
  Receipt Date: 20170104
  Transmission Date: 20170428
  Serious: Yes (Other)
  Sender: FDA-Public Use
  Company Number: CH-ALSI-201600384

PATIENT
  Age: 35 Year
  Sex: Male

DRUGS (2)
  1. OXYGEN. [Suspect]
     Active Substance: OXYGEN
     Indication: AIR EMBOLISM
     Route: 055
  2. HELIUM. [Concomitant]
     Active Substance: HELIUM
     Route: 055

REACTIONS (1)
  - Generalised tonic-clonic seizure [None]
